FAERS Safety Report 6877219-3 (Version None)
Quarter: 2010Q3

REPORT INFORMATION
  Report Type: 
  Country: None (occurrence: None)
  Receive Date: 20100727
  Receipt Date: 20091111
  Transmission Date: 20110219
  Serious: No
  Sender: FDA-Public Use
  Company Number: US-ABBOTT-08P-163-0433223-00

PATIENT
  Sex: Female
  Weight: 78.088 kg

DRUGS (9)
  1. SYNTHROID [Suspect]
     Indication: HYPOTHYROIDISM
     Route: 048
     Dates: start: 20061201, end: 20071101
  2. SYNTHROID [Suspect]
     Dates: start: 20090829, end: 20090901
  3. PREVACID [Suspect]
     Indication: GASTROOESOPHAGEAL REFLUX DISEASE
     Dosage: DAILY
     Dates: start: 20070101, end: 20090101
  4. ZYRTEC [Suspect]
     Indication: HYPERSENSITIVITY
     Dosage: DAILY
     Dates: start: 20070101, end: 20070101
  5. PREVACID [Concomitant]
     Indication: GASTROOESOPHAGEAL REFLUX DISEASE
     Route: 048
  6. ZYRTEC [Concomitant]
     Indication: HOUSE DUST ALLERGY
     Route: 048
  7. ZYRTEC [Concomitant]
     Indication: MYCOTIC ALLERGY
  8. ZYRTEC [Concomitant]
     Indication: SEASONAL ALLERGY
  9. ANDRODERM [Concomitant]
     Indication: TRANS-SEXUALISM
     Dosage: PATCH
     Dates: start: 20090401

REACTIONS (5)
  - ALANINE AMINOTRANSFERASE INCREASED [None]
  - ASPARTATE AMINOTRANSFERASE INCREASED [None]
  - HEPATOMEGALY [None]
  - HYPOTHYROIDISM [None]
  - MUSCULOSKELETAL CHEST PAIN [None]
